FAERS Safety Report 6676231-7 (Version None)
Quarter: 2010Q1

REPORT INFORMATION
  Report Type: 
  Country: None (occurrence: None)
  Receive Date: 20100331
  Receipt Date: 20090922
  Transmission Date: 20100710
  Serious: Yes (Other)
  Sender: FDA-Public Use
  Company Number: 2009226703

PATIENT
  Age: 50 Year
  Sex: Male
  Weight: 99.8 kg

DRUGS (6)
  1. SUNITINIB MALATE [Suspect]
     Indication: NEUROENDOCRINE TUMOUR
     Dosage: 50 MG, 1X/DAY, X  14 DAYS, 7 OFF, ORAL
     Route: 048
     Dates: start: 20090501
  2. DURAGESIC-100 [Concomitant]
  3. DILAUDID [Concomitant]
  4. INSULIN (INSULIN) [Concomitant]
  5. METOPROLOL (METOPROLOL) [Concomitant]
  6. ACEON [Concomitant]

REACTIONS (5)
  - ARTHRALGIA [None]
  - DISEASE PROGRESSION [None]
  - MYALGIA [None]
  - NAIL DISORDER [None]
  - NEUROENDOCRINE TUMOUR [None]
